FAERS Safety Report 26059562 (Version 1)
Quarter: 2025Q4

REPORT INFORMATION
  Report Type: Spontaneous
  Country: EU (occurrence: EU)
  Receive Date: 20251118
  Receipt Date: 20251118
  Transmission Date: 20260118
  Serious: Yes (Hospitalization, Disabling, Other)
  Sender: SANDOZ
  Company Number: EU-BIOGARAN-B25001343

PATIENT
  Age: 69 Year
  Sex: Female
  Weight: 72 kg

DRUGS (7)
  1. CIPROFLOXACIN [Suspect]
     Active Substance: CIPROFLOXACIN
     Indication: Pyelonephritis
     Dosage: 500 MG, BID
     Route: 048
     Dates: start: 20241128, end: 202412
  2. DULOXETINE [Suspect]
     Active Substance: DULOXETINE
     Indication: Anxiety
     Dosage: 1 UNK, QD
     Route: 048
  3. AMOXICILLIN [Concomitant]
     Active Substance: AMOXICILLIN
     Indication: Streptococcal infection
     Dosage: 6 G, QD
     Route: 048
     Dates: start: 2024
  4. DAPTOMYCIN [Concomitant]
     Active Substance: DAPTOMYCIN
     Indication: Postoperative wound infection
     Dosage: UNK
     Route: 042
     Dates: start: 20241104, end: 20241108
  5. LEVOTHYROXINE [Concomitant]
     Active Substance: LEVOTHYROXINE
     Indication: Product used for unknown indication
     Dosage: UNK
     Route: 065
  6. LINEZOLID [Concomitant]
     Active Substance: LINEZOLID
     Indication: Postoperative wound infection
     Dosage: 600 MG, BID
     Route: 048
     Dates: start: 20241108, end: 20241120
  7. PIPERACILLIN SODIUM\TAZOBACTAM SODIUM [Concomitant]
     Active Substance: PIPERACILLIN SODIUM\TAZOBACTAM SODIUM
     Indication: Postoperative wound infection
     Dosage: UNK
     Route: 042
     Dates: start: 20241104, end: 20241108

REACTIONS (11)
  - Visual acuity reduced [Not Recovered/Not Resolved]
  - Gait disturbance [Not Recovered/Not Resolved]
  - Tendon disorder [Not Recovered/Not Resolved]
  - Tendon rupture [Not Recovered/Not Resolved]
  - Tremor [Not Recovered/Not Resolved]
  - Fatigue [Not Recovered/Not Resolved]
  - Burning sensation [Not Recovered/Not Resolved]
  - Bone pain [Not Recovered/Not Resolved]
  - Neuralgia [Not Recovered/Not Resolved]
  - Drug hypersensitivity [Unknown]
  - Therapeutic response unexpected [Not Recovered/Not Resolved]

NARRATIVE: CASE EVENT DATE: 20241201
